FAERS Safety Report 23243582 (Version 1)
Quarter: 2023Q4

REPORT INFORMATION
  Report Type: Spontaneous
  Country: US (occurrence: US)
  Receive Date: 20231130
  Receipt Date: 20231130
  Transmission Date: 20240110
  Serious: No
  Sender: FDA-Public Use
  Company Number: US-TAKEDA-2023TUS115615

PATIENT
  Sex: Male

DRUGS (1)
  1. VYVANSE [Suspect]
     Active Substance: LISDEXAMFETAMINE DIMESYLATE
     Indication: Product used for unknown indication
     Dosage: 60 MILLIGRAM
     Route: 065
     Dates: end: 202308

REACTIONS (2)
  - Product availability issue [Unknown]
  - Product use issue [Unknown]

NARRATIVE: CASE EVENT DATE: 20230801
